FAERS Safety Report 5067331-6 (Version None)
Quarter: 2006Q3

REPORT INFORMATION
  Report Type: 
  Country: None (occurrence: None)
  Receive Date: 20060714
  Receipt Date: 20060614
  Transmission Date: 20061208
  Serious: No
  Sender: FDA-Public Use
  Company Number: 2006SP002416

PATIENT
  Age: 45 Year
  Sex: Female
  Weight: 55.3388 kg

DRUGS (3)
  1. LUNESTA [Suspect]
     Indication: INSOMNIA
     Dosage: SEE IMAGE
     Route: 048
     Dates: start: 20060608, end: 20060609
  2. LUNESTA [Suspect]
     Indication: INSOMNIA
     Dosage: SEE IMAGE
     Route: 048
     Dates: start: 20060613, end: 20060613
  3. IBUPROFEN [Concomitant]

REACTIONS (1)
  - MIDDLE INSOMNIA [None]
